FAERS Safety Report 6217747-7 (Version None)
Quarter: 2009Q2

REPORT INFORMATION
  Report Type: 
  Country: None (occurrence: None)
  Receive Date: 20090604
  Receipt Date: 20090604
  Transmission Date: 20091009
  Serious: Yes (Other)
  Sender: FDA-Public Use
  Company Number: None

PATIENT
  Age: 39 Year
  Sex: Female

DRUGS (1)
  1. LEVETIRACETAM [Suspect]
     Indication: EPILEPSY
     Dosage: TAKE 2 TABLETS TWICE DAILY

REACTIONS (3)
  - AURA [None]
  - DYSKINESIA [None]
  - PRODUCT SUBSTITUTION ISSUE [None]
